FAERS Safety Report 10375092 (Version 1)
Quarter: 2014Q1

REPORT INFORMATION
  Report Type: Spontaneous
  Country: US (occurrence: None)
  Receive Date: 20140306
  Receipt Date: 20140306
  Transmission Date: 20141002
  Serious: Yes (Hospitalization)
  Sender: FDA-Public Use
  Company Number: 163-21880-12114101

PATIENT
  Age: 54 Year
  Sex: Male
  Weight: 140.62 kg

DRUGS (7)
  1. REVLIMID (LENALIDOMIDE) (CAPSULES) [Suspect]
     Indication: PLASMA CELL MYELOMA
     Route: 048
     Dates: start: 20120110
  2. GLIPIZIDE (GLIPIZIDE) [Concomitant]
  3. METFORMIN HCL (METFORMIN HYDROCHLORIDE) [Concomitant]
  4. NIASPAN (NICOTINIC ACID) (TABLETS) [Concomitant]
  5. NIFEDIPINE (NIFEDIPINE) (CAPSULES) [Concomitant]
  6. SIMVASTATIN (SIMVASTATIN) (TABLETS) [Concomitant]
  7. TOPROL XL (METOPROLOL SUCCINATE) (TABLETS) [Concomitant]

REACTIONS (4)
  - Pneumonia [None]
  - Lacrimation increased [None]
  - Dyspnoea [None]
  - Fatigue [None]
